FAERS Safety Report 10081323 (Version 1)
Quarter: 2014Q2

REPORT INFORMATION
  Report Type: Spontaneous
  Country: GB (occurrence: GB)
  Receive Date: 20140416
  Receipt Date: 20140416
  Transmission Date: 20141212
  Serious: Yes (Disabling, Other)
  Sender: FDA-Public Use
  Company Number: GB-009507513-1404GBR006704

PATIENT
  Age: 64 Year
  Sex: Male
  Weight: 110 kg

DRUGS (9)
  1. MIRTAZAPINE [Suspect]
     Indication: DEPRESSION
     Dosage: 30 MG
     Route: 048
     Dates: start: 20140128, end: 20140129
  2. EXENATIDE [Concomitant]
     Dosage: 10 MG
  3. GLICLAZIDE [Concomitant]
     Dosage: UNK
  4. IRBESARTAN [Concomitant]
  5. LANSOPRAZOLE [Concomitant]
  6. METFORMIN HYDROCHLORIDE [Concomitant]
     Dosage: UNK
  7. ORLISTAT [Concomitant]
     Dosage: UNK
  8. THIAMINE HYDROCHLORIDE [Concomitant]
  9. ZOLPIDEM TARTRATE [Concomitant]
     Dosage: UNK

REACTIONS (4)
  - Cerebrovascular accident [Recovered/Resolved with Sequelae]
  - Pain [Unknown]
  - Hypoaesthesia [Unknown]
  - Discomfort [Not Recovered/Not Resolved]
